FAERS Safety Report 10150391 (Version 2)
Quarter: 2014Q2

REPORT INFORMATION
  Report Type: Spontaneous
  Country: US (occurrence: US)
  Receive Date: 20140502
  Receipt Date: 20140523
  Transmission Date: 20141212
  Serious: Yes (Death, Hospitalization)
  Sender: FDA-Public Use
  Company Number: US-B.I. PHARMACEUTICALS,INC./RIDGEFIELD-2014-BI-19567BP

PATIENT
  Sex: Female

DRUGS (7)
  1. PRADAXA [Suspect]
     Indication: PRODUCT USED FOR UNKNOWN INDICATION
     Dosage: 150 MG
     Route: 048
     Dates: start: 2011, end: 2013
  2. DILTIAZEM [Concomitant]
     Route: 065
  3. ZETIA [Concomitant]
     Route: 065
  4. METOPROLOL [Concomitant]
     Route: 065
  5. LISINOPRIL [Concomitant]
     Route: 065
  6. POTASSIUM [Concomitant]
     Route: 065
  7. SYNTHROID [Concomitant]
     Route: 065

REACTIONS (3)
  - Abdominal pain [Fatal]
  - Vomiting [Fatal]
  - Lethargy [Fatal]
